FAERS Safety Report 9540565 (Version 2)
Quarter: 2013Q4

REPORT INFORMATION
  Report Type: Spontaneous
  Country: US (occurrence: US)
  Receive Date: 20130920
  Receipt Date: 20131031
  Transmission Date: 20140711
  Serious: No
  Sender: FDA-Public Use
  Company Number: US-PFIZER INC-2013269571

PATIENT
  Age: 46 Year
  Sex: Female
  Weight: 63.49 kg

DRUGS (4)
  1. LYRICA [Suspect]
     Indication: FIBROMYALGIA
     Dosage: 300 MG, DAILY
     Dates: start: 201303
  2. LYRICA [Suspect]
     Dosage: 300 MG, TWO TIMES DAILY
     Dates: start: 2013
  3. LYRICA [Suspect]
     Dosage: 300 MG, UNK
     Dates: start: 2013, end: 201309
  4. METOPROLOL [Suspect]
     Indication: HYPERTENSION
     Dosage: 100 MG, 2X/DAY

REACTIONS (5)
  - Blood pressure increased [Unknown]
  - Pain [Unknown]
  - Infection [Unknown]
  - Malaise [Unknown]
  - Drug ineffective [Unknown]
